FAERS Safety Report 9458143 (Version 1)
Quarter: 2013Q3

REPORT INFORMATION
  Report Type: Spontaneous
  Country: US (occurrence: None)
  Receive Date: 20130812
  Receipt Date: 20130812
  Transmission Date: 20140515
  Serious: Yes (Other)
  Sender: FDA-Public Use
  Company Number: None

PATIENT
  Sex: Male

DRUGS (1)
  1. RIBAVIRIN [Suspect]
     Indication: HEPATITIS C
     Route: 048
     Dates: start: 20130320

REACTIONS (6)
  - Asthenia [None]
  - Fatigue [None]
  - Dyspnoea [None]
  - Mood swings [None]
  - Dysgeusia [None]
  - Pollakiuria [None]
